FAERS Safety Report 4350764-0 (Version None)
Quarter: 2004Q2

REPORT INFORMATION
  Report Type: 
  Country: None (occurrence: None)
  Receive Date: 20040427
  Receipt Date: 20040409
  Transmission Date: 20050107
  Serious: Yes (Other)
  Sender: FDA-Public Use
  Company Number: DSA_24227_2004

PATIENT
  Age: 54 Year
  Sex: Male

DRUGS (8)
  1. LORAZEPAM [Suspect]
     Dates: start: 20040101, end: 20040101
  2. LORAZEPAM [Suspect]
     Dates: start: 20030701
  3. L-THYROXIN ^HENNING BERLIN^ [Concomitant]
  4. ASS-RATIOPHARM [Concomitant]
  5. METRONIDAZOLE [Concomitant]
  6. ANTRA [Concomitant]
  7. MALARONE [Concomitant]
  8. TRILEPTAL [Concomitant]

REACTIONS (4)
  - ANTIBODY TEST POSITIVE [None]
  - EAR HAEMORRHAGE [None]
  - HAEMATOMA [None]
  - IDIOPATHIC THROMBOCYTOPENIC PURPURA [None]
